FAERS Safety Report 8098345-X (Version None)
Quarter: 2012Q1

REPORT INFORMATION
  Report Type: 
  Country: None (occurrence: None)
  Receive Date: 20120131
  Receipt Date: 20120117
  Transmission Date: 20120608
  Serious: Yes (Hospitalization)
  Sender: FDA-Public Use
  Company Number: IT-CELGENEUS-083-20785-11102044

PATIENT
  Sex: Female

DRUGS (10)
  1. GAVISCON [Concomitant]
     Route: 065
  2. ALKERAN [Suspect]
     Indication: MULTIPLE MYELOMA
     Dosage: 10 MILLIGRAM
     Route: 048
     Dates: start: 20110428, end: 20110501
  3. OMEPRAZOLE [Concomitant]
     Route: 065
  4. ALLOPURINOL [Concomitant]
     Dosage: 100 MILLIGRAM
     Route: 065
  5. NATECAL D3 [Concomitant]
     Dosage: 1 UNIT
     Route: 065
  6. PREDNISONE TAB [Suspect]
     Indication: MULTIPLE MYELOMA
     Dosage: 50 MILLIGRAM
     Route: 048
     Dates: start: 20110428, end: 20110501
  7. PREDNISONE TAB [Suspect]
     Indication: MULTIPLE MYELOMA
     Route: 065
     Dates: start: 20110401
  8. ASPIRIN [Concomitant]
     Dosage: 1 UNIT
     Route: 065
  9. ZOMETA [Concomitant]
     Route: 065
  10. THALIDOMIDE [Suspect]
     Indication: MULTIPLE MYELOMA
     Dosage: 50 MILLIGRAM
     Route: 048
     Dates: start: 20110428, end: 20110516

REACTIONS (4)
  - ATRIAL FIBRILLATION [None]
  - ASTHENIA [None]
  - DYSPNOEA EXERTIONAL [None]
  - PULMONARY HYPERTENSION [None]
